FAERS Safety Report 8472915-9 (Version None)
Quarter: 2012Q2

REPORT INFORMATION
  Report Type: 
  Country: None (occurrence: None)
  Receive Date: 20120622
  Receipt Date: 20120622
  Transmission Date: 20120825
  Serious: Yes (Death)
  Sender: FDA-Public Use
  Company Number: None

PATIENT
  Sex: Male
  Weight: 101.6 kg

DRUGS (2)
  1. VELCADE [Suspect]
     Indication: MANTLE CELL LYMPHOMA
     Dosage: 1.6 MG/M2 WEEKLY IV
     Route: 042
     Dates: start: 20120404, end: 20120516
  2. TEMSIROLIMUS [Suspect]
     Indication: MANTLE CELL LYMPHOMA
     Dosage: 25 MG WEEKLY IV
     Route: 042
     Dates: start: 20120404, end: 20120516

REACTIONS (10)
  - URINARY TRACT INFECTION [None]
  - MENTAL STATUS CHANGES [None]
  - PAIN [None]
  - HAEMODIALYSIS [None]
  - PLATELET COUNT DECREASED [None]
  - CARDIAC FAILURE [None]
  - RENAL FAILURE ACUTE [None]
  - LYMPHOCYTOSIS [None]
  - NEOPLASM PROGRESSION [None]
  - MANTLE CELL LYMPHOMA [None]
